FAERS Safety Report 25391290 (Version 3)
Quarter: 2025Q2

REPORT INFORMATION
  Report Type: Report from Study
  Country: ES (occurrence: ES)
  Receive Date: 20250603
  Receipt Date: 20250610
  Transmission Date: 20250717
  Serious: Yes (Other)
  Sender: JOHNSON AND JOHNSON
  Company Number: ES-JNJFOC-20250532744

PATIENT

DRUGS (3)
  1. INFLIXIMAB [Suspect]
     Active Substance: INFLIXIMAB
     Indication: Inflammatory bowel disease
     Route: 041
  2. SIMPONI [Suspect]
     Active Substance: GOLIMUMAB
     Indication: Inflammatory bowel disease
     Route: 058
  3. CERTOLIZUMAB [Suspect]
     Active Substance: CERTOLIZUMAB
     Indication: Inflammatory bowel disease
     Route: 065

REACTIONS (9)
  - Prothrombin time prolonged [Unknown]
  - Lupus-like syndrome [Unknown]
  - Chronic cutaneous lupus erythematosus [Unknown]
  - Antinuclear antibody positive [Unknown]
  - Drug specific antibody present [Unknown]
  - Antiphospholipid antibodies positive [Unknown]
  - Cardiolipin antibody positive [Unknown]
  - Beta-2 glycoprotein antibody positive [Unknown]
  - Therapeutic product effect decreased [Unknown]
